FAERS Safety Report 18982426 (Version 2)
Quarter: 2021Q3

REPORT INFORMATION
  Report Type: Spontaneous
  Country: JP (occurrence: JP)
  Receive Date: 20210308
  Receipt Date: 20210921
  Transmission Date: 20211014
  Serious: Yes (Other)
  Sender: FDA-Public Use
  Company Number: NVSJ2021JP003813

PATIENT
  Age: 77 Year
  Sex: Female

DRUGS (1)
  1. TEGRETOL [Suspect]
     Active Substance: CARBAMAZEPINE
     Indication: PRODUCT USED FOR UNKNOWN INDICATION
     Dosage: UNK
     Route: 065

REACTIONS (1)
  - Dermatitis bullous [Unknown]
